FAERS Safety Report 6694648-1 (Version None)
Quarter: 2010Q2

REPORT INFORMATION
  Report Type: 
  Country: None (occurrence: None)
  Receive Date: 20100423
  Receipt Date: 20100413
  Transmission Date: 20101027
  Serious: Yes (Hospitalization)
  Sender: FDA-Public Use
  Company Number: GXKR2010ES04025

PATIENT
  Age: 50 Year
  Sex: Male

DRUGS (10)
  1. PHENYTOIN (NGX) [Interacting]
     Indication: STATUS EPILEPTICUS
     Dosage: 1 G, IN 30 MINUTES
     Route: 042
  2. PHENYTOIN (NGX) [Interacting]
     Indication: CONVULSION
     Dosage: 100 MG, Q8H
     Route: 042
  3. PHENYTOIN (NGX) [Interacting]
     Dosage: 100 MG, Q8H
     Route: 048
  4. PHENYTOIN (NGX) [Interacting]
     Dosage: 400 MG/DAY IN THREE DOSES
     Route: 065
  5. CISPLATIN [Interacting]
     Indication: GLIOBLASTOMA MULTIFORME
     Dosage: 65 MG/M2, UNK
     Route: 065
     Dates: start: 20061101
  6. DEXAMETHASONE (NGX) [Suspect]
     Indication: GLIOBLASTOMA MULTIFORME
     Dosage: 2 MG, Q12H
     Route: 065
     Dates: start: 20061101
  7. DEXAMETHASONE (NGX) [Interacting]
     Dosage: 4 MG, Q6H
     Route: 065
  8. CARMUSTINE [Interacting]
     Indication: GLIOBLASTOMA MULTIFORME
     Dosage: 100 MG/M2, UNK
  9. TEMOZOLOMIDE [Interacting]
     Indication: GLIOBLASTOMA MULTIFORME
  10. RADIOTHERAPY [Concomitant]
     Indication: GLIOBLASTOMA MULTIFORME

REACTIONS (6)
  - DIPLOPIA [None]
  - DRUG INTERACTION [None]
  - HEMIANOPIA [None]
  - NYSTAGMUS [None]
  - OPHTHALMOPLEGIA [None]
  - PARALYSIS [None]
